FAERS Safety Report 8217295-9 (Version None)
Quarter: 2012Q1

REPORT INFORMATION
  Report Type: 
  Country: None (occurrence: None)
  Receive Date: 20120307
  Receipt Date: 20120227
  Transmission Date: 20120608
  Serious: Yes (Other)
  Sender: FDA-Public Use
  Company Number: 1211015

PATIENT
  Age: 37 Year
  Sex: Female

DRUGS (1)
  1. PACLITAXEL [Suspect]
     Indication: BREAST CANCER METASTATIC
     Dosage: 90 MG/M 2 MILLIGRAM(S)/SQ. METER (1 WEEK)
     Route: 042
     Dates: start: 20120201, end: 20120209

REACTIONS (5)
  - DYSPNOEA [None]
  - HYPOTENSION [None]
  - INFUSION RELATED REACTION [None]
  - DRUG HYPERSENSITIVITY [None]
  - BRONCHOSPASM [None]
